FAERS Safety Report 8603137 (Version 3)
Quarter: 2013Q2

REPORT INFORMATION
  Report Type: Spontaneous
  Country: US (occurrence: US)
  Receive Date: 20120607
  Receipt Date: 20130410
  Transmission Date: 20140414
  Serious: No
  Sender: FDA-Public Use
  Company Number: US-ASTRAZENECA-2012SE29601

PATIENT
  Age: 34 Year
  Sex: Female

DRUGS (4)
  1. NEXIUM [Suspect]
     Route: 048
  2. OMEPRAZOLE [Suspect]
     Route: 048
  3. PREVACID [Concomitant]
  4. PROTONIX [Concomitant]

REACTIONS (6)
  - Gastric disorder [Unknown]
  - Gastrooesophageal reflux disease [Unknown]
  - Pain [Unknown]
  - Ulcer [Unknown]
  - Drug dose omission [Unknown]
  - Drug ineffective [Unknown]
